FAERS Safety Report 11498096 (Version 2)
Quarter: 2015Q3

REPORT INFORMATION
  Report Type: Report from Study
  Country: AU (occurrence: AU)
  Receive Date: 20150911
  Receipt Date: 20150914
  Transmission Date: 20151125
  Serious: Yes (Other)
  Sender: FDA-Public Use
  Company Number: AU-PFIZER INC-2015291562

PATIENT

DRUGS (2)
  1. PHENYTOIN. [Suspect]
     Active Substance: PHENYTOIN
     Indication: EPILEPSY
     Dosage: 300 MG, DAILY (5 WEEKS BEFORE DELIVERY)
     Route: 064
  2. AMYLOBARBITONE [Suspect]
     Active Substance: AMOBARBITAL
     Indication: EPILEPSY
     Dosage: 150 MG, DAILY
     Route: 064

REACTIONS (2)
  - Maternal exposure during pregnancy [Unknown]
  - Coagulation disorder neonatal [Unknown]
